FAERS Safety Report 23985620 (Version 1)
Quarter: 2024Q2

REPORT INFORMATION
  Report Type: Report from Study
  Country: CA (occurrence: CA)
  Receive Date: 20240618
  Receipt Date: 20240618
  Transmission Date: 20240716
  Serious: Yes (Hospitalization)
  Sender: FDA-Public Use
  Company Number: CA-OTSUKA-2021_035261

PATIENT
  Sex: Male

DRUGS (2)
  1. ARIPIPRAZOLE [Suspect]
     Active Substance: ARIPIPRAZOLE
     Indication: Bipolar disorder
     Dosage: 400 MG, EVERY 4 WEEKS
     Route: 030
     Dates: start: 2020
  2. ARIPIPRAZOLE [Suspect]
     Active Substance: ARIPIPRAZOLE
     Dosage: PRESCRIBED DOSE DECREASE 300 MG EVERY 4 WEEKS
     Route: 030

REACTIONS (7)
  - Oesophagectomy [Unknown]
  - Gastrointestinal anastomotic leak [Unknown]
  - Oesophageal adenocarcinoma [Unknown]
  - Flat affect [Unknown]
  - Migraine [Unknown]
  - Inappropriate schedule of product administration [Unknown]
  - Underdose [Unknown]
